FAERS Safety Report 14764577 (Version 5)
Quarter: 2022Q3

REPORT INFORMATION
  Report Type: Spontaneous
  Country: ES (occurrence: ES)
  Receive Date: 20180416
  Receipt Date: 20220825
  Transmission Date: 20221027
  Serious: Yes (Death, Hospitalization, Other)
  Sender: FDA-Public Use
  Company Number: PHHY2018ES062179

PATIENT
  Age: 64 Year
  Sex: Male

DRUGS (14)
  1. OXALIPLATIN [Suspect]
     Active Substance: OXALIPLATIN
     Indication: Rectosigmoid cancer stage IV
     Dosage: UNK
     Route: 065
  2. LEUCOVORIN CALCIUM [Suspect]
     Active Substance: LEUCOVORIN CALCIUM
     Indication: Rectosigmoid cancer stage IV
     Dosage: UNK, CYCLIC
     Route: 065
  3. LEUCOVORIN CALCIUM [Suspect]
     Active Substance: LEUCOVORIN CALCIUM
     Indication: Metastases to liver
  4. IRINOTECAN [Suspect]
     Active Substance: IRINOTECAN
     Indication: Rectosigmoid cancer stage IV
     Dosage: UNK (LIPOSOME)
     Route: 042
  5. AFLIBERCEPT [Suspect]
     Active Substance: AFLIBERCEPT
     Indication: Rectosigmoid cancer stage IV
     Dosage: UNK, CYCLIC
     Route: 065
  6. AFLIBERCEPT [Suspect]
     Active Substance: AFLIBERCEPT
     Indication: Metastases to liver
  7. CETUXIMAB [Suspect]
     Active Substance: CETUXIMAB
     Indication: Rectosigmoid cancer stage IV
     Dosage: UNK
     Route: 065
  8. BEVACIZUMAB [Suspect]
     Active Substance: BEVACIZUMAB
     Indication: Rectosigmoid cancer stage IV
     Dosage: UNK
     Route: 065
  9. FLUOROURACIL [Suspect]
     Active Substance: FLUOROURACIL
     Indication: Rectosigmoid cancer stage IV
     Dosage: UNK, CYCLIC
     Route: 065
  10. CAPECITABINE [Suspect]
     Active Substance: CAPECITABINE
     Indication: Rectosigmoid cancer stage IV
     Dosage: UNK
     Route: 065
  11. FLUOROURACIL\IRINOTECAN\LEUCOVORIN [Suspect]
     Active Substance: FLUOROURACIL\IRINOTECAN\LEUCOVORIN
     Indication: Product used for unknown indication
     Dosage: UNK
     Route: 065
  12. FLUOROURACIL\LEUCOVORIN CALCIUM\OXALIPLATIN [Suspect]
     Active Substance: FLUOROURACIL\LEUCOVORIN CALCIUM\OXALIPLATIN
     Indication: Product used for unknown indication
     Dosage: UNK
     Route: 065
  13. LORAZEPAM [Concomitant]
     Active Substance: LORAZEPAM
     Indication: Product used for unknown indication
     Dosage: UNK
     Route: 065
  14. OMEPRAZOLE [Concomitant]
     Active Substance: OMEPRAZOLE
     Indication: Product used for unknown indication
     Dosage: UNK
     Route: 065

REACTIONS (27)
  - Fournier^s gangrene [Fatal]
  - Tenderness [Fatal]
  - Renal failure [Fatal]
  - Coagulopathy [Fatal]
  - Off label use [Fatal]
  - Inflammation [Fatal]
  - Pyrexia [Fatal]
  - Blood creatine phosphokinase increased [Fatal]
  - Proteus infection [Fatal]
  - C-reactive protein increased [Fatal]
  - Tachycardia [Fatal]
  - Leukocytosis [Fatal]
  - Candida infection [Fatal]
  - Induration [Fatal]
  - Blood creatinine increased [Fatal]
  - Blood lactic acid increased [Fatal]
  - Klebsiella infection [Fatal]
  - Chills [Fatal]
  - Neutrophilia [Fatal]
  - Erythema [Fatal]
  - Prothrombin level increased [Fatal]
  - Clostridial infection [Fatal]
  - Hypotension [Fatal]
  - Neutropenia [Fatal]
  - Thrombocytopenia [Fatal]
  - Epistaxis [Fatal]
  - Neoplasm progression [Unknown]
